FAERS Safety Report 5177741-4 (Version None)
Quarter: 2006Q4

REPORT INFORMATION
  Report Type: 
  Country: None (occurrence: None)
  Receive Date: 20061218
  Receipt Date: 20061129
  Transmission Date: 20070319
  Serious: No
  Sender: FDA-Public Use
  Company Number: US-AMGEN-US201706

PATIENT
  Sex: Male

DRUGS (13)
  1. SENSIPAR [Suspect]
     Indication: HYPERPARATHYROIDISM SECONDARY
     Dates: start: 20061117, end: 20061119
  2. ARANESP [Concomitant]
     Indication: DIALYSIS
  3. HECTORAL [Concomitant]
  4. NEPHROCAPS [Concomitant]
  5. VENOFER [Concomitant]
  6. COUMADIN [Concomitant]
  7. DIGOXIN [Concomitant]
  8. SANDOSTATIN [Concomitant]
  9. TRAZODONE HCL [Concomitant]
  10. METHIMAZOLE [Concomitant]
  11. LUNESTA [Concomitant]
  12. HYDROXYZINE [Concomitant]
  13. RIOPAN [Concomitant]

REACTIONS (3)
  - DIARRHOEA [None]
  - DIZZINESS [None]
  - NAUSEA [None]
